FAERS Safety Report 6575362-X (Version None)
Quarter: 2010Q1

REPORT INFORMATION
  Report Type: 
  Country: None (occurrence: None)
  Receive Date: 20100209
  Receipt Date: 20100204
  Transmission Date: 20100710
  Serious: Yes (Other)
  Sender: FDA-Public Use
  Company Number: GB-JNJFOC-20080802575

PATIENT
  Age: 6 Week
  Sex: Male

DRUGS (2)
  1. PARACETAMOL [Suspect]
     Route: 048
  2. PARACETAMOL [Suspect]
     Indication: DRUG USE FOR UNKNOWN INDICATION
     Dosage: DURATION OF TREATMENT 2 DAYS, MAXIMUM DOSE UNSPECIFIED
     Route: 048

REACTIONS (2)
  - LIVER INJURY [None]
  - POISONING DELIBERATE [None]
